FAERS Safety Report 20844451 (Version 3)
Quarter: 2022Q3

REPORT INFORMATION
  Report Type: Spontaneous
  Country: US (occurrence: US)
  Receive Date: 20220518
  Receipt Date: 20220801
  Transmission Date: 20221027
  Serious: Yes (Other)
  Sender: FDA-Public Use
  Company Number: US-Merz Pharmaceuticals GmbH-22-01357

PATIENT
  Age: 34 Year
  Sex: Female

DRUGS (3)
  1. XEOMIN [Suspect]
     Active Substance: INCOBOTULINUMTOXINA
     Indication: Skin cosmetic procedure
     Dates: start: 20220324, end: 20220324
  2. XEOMIN [Suspect]
     Active Substance: INCOBOTULINUMTOXINA
     Indication: Skin wrinkling
  3. XEOMIN [Suspect]
     Active Substance: INCOBOTULINUMTOXINA
     Indication: Skin wrinkling

REACTIONS (19)
  - Syncope [Recovering/Resolving]
  - Tinnitus [Recovering/Resolving]
  - Blepharospasm [Recovering/Resolving]
  - Palpitations [Not Recovered/Not Resolved]
  - Chest discomfort [Recovering/Resolving]
  - Tongue disorder [Recovering/Resolving]
  - Dysgeusia [Recovering/Resolving]
  - Visual impairment [Not Recovered/Not Resolved]
  - Balance disorder [Not Recovered/Not Resolved]
  - Irregular sleep wake rhythm disorder [Not Recovered/Not Resolved]
  - Toxicity to various agents [Unknown]
  - Injection site mass [Unknown]
  - Tongue ulceration [Unknown]
  - Paraesthesia [Recovering/Resolving]
  - Dry mouth [Recovering/Resolving]
  - Headache [Unknown]
  - Injection site erythema [Unknown]
  - Injection site pruritus [Unknown]
  - Off label use [Unknown]

NARRATIVE: CASE EVENT DATE: 20220101
